FAERS Safety Report 17711746 (Version 1)
Quarter: 2020Q2

REPORT INFORMATION
  Report Type: Spontaneous
  Country: DK (occurrence: DK)
  Receive Date: 20200427
  Receipt Date: 20200427
  Transmission Date: 20200714
  Serious: Yes (Other)
  Sender: FDA-Public Use
  Company Number: NVSC2020DK110553

PATIENT
  Age: 67 Year
  Sex: Male

DRUGS (2)
  1. LAMICTAL [Concomitant]
     Active Substance: LAMOTRIGINE
     Indication: EPILEPSY
     Dosage: 150 MG, QD (STYRKE: 50 MG OG 100 MG)
     Route: 048
     Dates: start: 20180830
  2. LEVETIRACETAM. [Suspect]
     Active Substance: LEVETIRACETAM
     Indication: EPILEPSY
     Dosage: 2000 MG, QD (STYRKE: 500 MG)
     Route: 048
     Dates: start: 20191105

REACTIONS (2)
  - Libido decreased [Recovering/Resolving]
  - Erectile dysfunction [Recovering/Resolving]

NARRATIVE: CASE EVENT DATE: 20191105
